FAERS Safety Report 10411685 (Version 2)
Quarter: 2014Q3

REPORT INFORMATION
  Report Type: Spontaneous
  Country: JP (occurrence: JP)
  Receive Date: 20140827
  Receipt Date: 20140827
  Transmission Date: 20150326
  Serious: Yes (Hospitalization)
  Sender: FDA-Public Use
  Company Number: JP-ROCHE-1432237

PATIENT
  Age: 46 Year
  Sex: Male
  Weight: 72 kg

DRUGS (4)
  1. TEMODAL [Concomitant]
     Active Substance: TEMOZOLOMIDE
     Indication: MALIGNANT GLIOMA
     Dosage: DOSAGE IS UNCERTAIN.?COMPLETED TREATMENT CYCLE NUMBER: 11
     Route: 048
     Dates: start: 20130208, end: 20140519
  2. PHENOBARBITAL. [Concomitant]
     Active Substance: PHENOBARBITAL
     Indication: CONVULSION
     Route: 048
     Dates: start: 200209
  3. AVASTIN [Suspect]
     Active Substance: BEVACIZUMAB
     Indication: MALIGNANT GLIOMA
     Dosage: COMPLETED TREATMENT CYCLE NUMBER 5
     Route: 041
     Dates: start: 20140107, end: 20140519
  4. KEPPRA [Concomitant]
     Active Substance: LEVETIRACETAM
     Indication: CONVULSION
     Dosage: REPORTED AS E KEPPRA
     Route: 048
     Dates: start: 20130830

REACTIONS (1)
  - Colitis ischaemic [Recovered/Resolved]

NARRATIVE: CASE EVENT DATE: 20140629
